FAERS Safety Report 25842070 (Version 1)
Quarter: 2025Q3

REPORT INFORMATION
  Report Type: Spontaneous
  Country: AR (occurrence: AR)
  Receive Date: 20250924
  Receipt Date: 20250924
  Transmission Date: 20251020
  Serious: Yes (Other)
  Sender: SANDOZ
  Company Number: AR-002147023-NVSC2025AR122544

PATIENT
  Age: 58 Year
  Sex: Female

DRUGS (2)
  1. FULVESTRANT [Suspect]
     Active Substance: FULVESTRANT
     Indication: Breast cancer metastatic
     Dosage: 2 DOSAGE FORM (250 MG), 28D (EVERY 28 DAYS) (THE 2 CONSECUTIVE INJECTIONS WERE ADMINISTERED: 500 MG
     Route: 030
     Dates: start: 20210129
  2. KISQALI [Suspect]
     Active Substance: RIBOCICLIB SUCCINATE
     Indication: Breast cancer metastatic
     Dosage: 600 MG, QD (21 DAYS OF TREATMENT + 1 WEEK OF REST)
     Route: 048
     Dates: start: 20210129

REACTIONS (10)
  - Ovarian neoplasm [Unknown]
  - Decreased immune responsiveness [Unknown]
  - Productive cough [Recovered/Resolved]
  - Vitamin D decreased [Unknown]
  - Malaise [Recovered/Resolved]
  - Laboratory test abnormal [Unknown]
  - Liver disorder [Unknown]
  - Abdominal discomfort [Unknown]
  - Influenza [Recovered/Resolved]
  - Vomiting [Recovered/Resolved]

NARRATIVE: CASE EVENT DATE: 20250728
